FAERS Safety Report 5288733-9 (Version None)
Quarter: 2007Q1

REPORT INFORMATION
  Report Type: 
  Country: None (occurrence: None)
  Receive Date: 20070330
  Receipt Date: 20070323
  Transmission Date: 20070707
  Serious: Yes (Other)
  Sender: FDA-Public Use
  Company Number: 2007SP002371

PATIENT
  Age: 13 Year
  Sex: Male

DRUGS (2)
  1. CELESTONE [Suspect]
     Indication: URTICARIA
     Dosage: 1 DF; PO
     Route: 048
     Dates: start: 20070128, end: 20070128
  2. ALLEGRA [Concomitant]

REACTIONS (1)
  - RHABDOMYOLYSIS [None]
